FAERS Safety Report 25832014 (Version 1)
Quarter: 2025Q3

REPORT INFORMATION
  Report Type: Spontaneous
  Country: US (occurrence: US)
  Receive Date: 20250922
  Receipt Date: 20250922
  Transmission Date: 20251020
  Serious: No
  Sender: BIOMARIN
  Company Number: US-BIOMARINAP-US-2025-168797

PATIENT
  Age: 35 Year
  Sex: Female

DRUGS (1)
  1. PALYNZIQ [Suspect]
     Active Substance: PEGVALIASE-PQPZ
     Indication: Phenylketonuria

REACTIONS (2)
  - Carpal tunnel syndrome [Unknown]
  - Amino acid level increased [Recovered/Resolved]

NARRATIVE: CASE EVENT DATE: 20250725
